FAERS Safety Report 15538381 (Version 15)
Quarter: 2019Q2

REPORT INFORMATION
  Report Type: Spontaneous
  Country: SK (occurrence: SK)
  Receive Date: 20181022
  Receipt Date: 20190613
  Transmission Date: 20190711
  Serious: Yes (Hospitalization, Other)
  Sender: FDA-Public Use
  Company Number: SK-MYLANLABS-2018M1078495

PATIENT
  Age: 70 Year
  Sex: Male

DRUGS (27)
  1. TELMISARTAN. [Suspect]
     Active Substance: TELMISARTAN
     Indication: HYPERTENSION
  2. SPIRONOLACTONE. [Suspect]
     Active Substance: SPIRONOLACTONE
     Indication: ATRIAL FIBRILLATION
     Dosage: 25 MILLIGRAM, QD (IN THE MORNING (25-0-0)
     Route: 048
  3. TELMISARTAN. [Suspect]
     Active Substance: TELMISARTAN
     Dosage: 80 MILLIGRAM, QD, (80 MG, 80-0-0)
     Route: 048
  4. DABIGATRAN [Suspect]
     Active Substance: DABIGATRAN
     Dosage: 2 DOSAGE FORM
     Route: 065
  5. METFORMIN [Suspect]
     Active Substance: METFORMIN HYDROCHLORIDE
     Dosage: 1700 MILLIGRAM, QD
     Route: 065
  6. ATORVASTATIN [Suspect]
     Active Substance: ATORVASTATIN
     Indication: PRODUCT USED FOR UNKNOWN INDICATION
     Dosage: 20 MG, QD
     Route: 065
  7. TELMISARTAN. [Suspect]
     Active Substance: TELMISARTAN
     Indication: ATRIAL FIBRILLATION
     Dosage: 80 MILLIGRAM, QD, (IN THE MORNING)
     Route: 048
  8. SPIRONOLACTONE. [Suspect]
     Active Substance: SPIRONOLACTONE
     Indication: HYPERTENSION
     Dosage: 25 MILLIGRAM, QD
     Route: 048
  9. METFORMIN [Suspect]
     Active Substance: METFORMIN HYDROCHLORIDE
     Indication: DIABETES MELLITUS
     Dosage: 850 MILLIGRAM, BID (850-0-850)
     Route: 065
  10. PRADAXA [Suspect]
     Active Substance: DABIGATRAN ETEXILATE MESYLATE
     Indication: ATRIAL FIBRILLATION
  11. DOXAZOSIN [Suspect]
     Active Substance: DOXAZOSIN\DOXAZOSIN MESYLATE
     Indication: PRODUCT USED FOR UNKNOWN INDICATION
     Dosage: 4 MILLIGRAM, QD (4 MG, 0-0-4)
  12. BISOPROLOL [Suspect]
     Active Substance: BISOPROLOL
     Dosage: 5 MILLIGRAM, QD
     Route: 065
  13. AMIODARONE [Suspect]
     Active Substance: AMIODARONE
     Dosage: 200 MG, QD (200 MG, 200-0-00
     Route: 065
  14. NIFEDIPINE. [Suspect]
     Active Substance: NIFEDIPINE
     Indication: PROPHYLAXIS
     Dosage: 20 MG, QD (0-0-20)
     Route: 065
  15. ATORVASTATIN [Suspect]
     Active Substance: ATORVASTATIN
     Dosage: 25 MG, (0-0-25)
     Route: 065
  16. AMIODARONE [Suspect]
     Active Substance: AMIODARONE
     Indication: PRODUCT USED FOR UNKNOWN INDICATION
     Dosage: IN THE MORNING
     Route: 065
  17. ATORVASTATIN [Suspect]
     Active Substance: ATORVASTATIN
     Dosage: 25 MG, QD
     Route: 065
  18. PRADAXA [Suspect]
     Active Substance: DABIGATRAN ETEXILATE MESYLATE
     Indication: PROPHYLAXIS
     Dosage: 300 MG, QD (2 X 150 MG)
     Route: 048
  19. DABIGATRAN [Suspect]
     Active Substance: DABIGATRAN
     Indication: PROPHYLAXIS
     Dosage: 300 MILLIGRAM, QD
     Route: 065
  20. NITRENDIPINE [Suspect]
     Active Substance: NITRENDIPINE
     Indication: PRODUCT USED FOR UNKNOWN INDICATION
     Dosage: 20 MG, 0-0-20
     Route: 065
  21. URAPIDIL [Suspect]
     Active Substance: URAPIDIL
     Indication: PRODUCT USED FOR UNKNOWN INDICATION
     Dosage: 60 MG IN THE MORNING AND 60 MG IN THE NIGHT
     Route: 065
  22. TELMISARTAN. [Suspect]
     Active Substance: TELMISARTAN
     Indication: ATRIAL FIBRILLATION
     Dosage: 80 MILLIGRAM, QD (80-0-0)
     Route: 048
  23. SPIRONOLACTONE. [Suspect]
     Active Substance: SPIRONOLACTONE
     Dosage: UNK
     Route: 065
  24. PRADAXA [Suspect]
     Active Substance: DABIGATRAN ETEXILATE MESYLATE
     Indication: CEREBROVASCULAR ACCIDENT PROPHYLAXIS
     Dosage: 150 MILLIGRAM, QD
  25. DABIGATRAN [Suspect]
     Active Substance: DABIGATRAN
     Dosage: 150 MILLIGRAM, BID
     Route: 048
  26. BISOPROLOL [Suspect]
     Active Substance: BISOPROLOL
     Indication: ATRIAL FIBRILLATION
     Dosage: 5 MILLIGRAM, AM, (IN THE MORNING (5-0-0))
     Route: 065
  27. URAPIDIL [Suspect]
     Active Substance: URAPIDIL
     Dosage: 60 MILLIGRAM, QD/60-0-60

REACTIONS (15)
  - Urinary tract infection [Recovering/Resolving]
  - Hydronephrosis [Unknown]
  - Bladder dilatation [Unknown]
  - Coagulopathy [Recovering/Resolving]
  - Nephrolithiasis [Unknown]
  - Calculus bladder [Unknown]
  - Benign prostatic hyperplasia [Recovering/Resolving]
  - Atrial fibrillation [Recovered/Resolved]
  - Dysuria [Unknown]
  - Pollakiuria [Unknown]
  - Haematuria [Recovered/Resolved]
  - Postrenal failure [Recovering/Resolving]
  - Asthenia [Unknown]
  - Acute kidney injury [Recovering/Resolving]
  - Urinary retention [Recovering/Resolving]

NARRATIVE: CASE EVENT DATE: 2017
